FAERS Safety Report 9187355 (Version 1)
Quarter: 2013Q1

REPORT INFORMATION
  Report Type: Spontaneous
  Country: JP (occurrence: JP)
  Receive Date: 20130325
  Receipt Date: 20130325
  Transmission Date: 20140127
  Serious: Yes (Hospitalization, Other)
  Sender: FDA-Public Use
  Company Number: JP-ROCHE-1180319

PATIENT
  Age: 20 None
  Sex: Female
  Weight: 46 kg

DRUGS (24)
  1. ACTEMRA [Suspect]
     Indication: JUVENILE IDIOPATHIC ARTHRITIS
     Route: 041
     Dates: start: 20060101
  2. ACTEMRA [Suspect]
     Indication: JUVENILE IDIOPATHIC ARTHRITIS
     Route: 041
     Dates: start: 20090404, end: 20110205
  3. ACTEMRA [Suspect]
     Indication: JUVENILE IDIOPATHIC ARTHRITIS
     Route: 041
     Dates: start: 20110305
  4. PREDONINE [Concomitant]
     Indication: JUVENILE IDIOPATHIC ARTHRITIS
     Route: 048
     Dates: start: 20050325, end: 20060722
  5. PREDONINE [Concomitant]
     Route: 048
     Dates: start: 20060722, end: 20060826
  6. PREDONINE [Concomitant]
     Route: 048
     Dates: start: 20060826, end: 20060923
  7. PREDONINE [Concomitant]
     Route: 048
     Dates: start: 20060923, end: 20061028
  8. PREDONINE [Concomitant]
     Route: 048
     Dates: start: 20061028, end: 20070113
  9. PREDONINE [Concomitant]
     Route: 048
     Dates: start: 20070113, end: 20090723
  10. PREDONINE [Concomitant]
     Route: 048
     Dates: start: 20070113, end: 20090723
  11. PREDONINE [Concomitant]
     Route: 048
     Dates: start: 20090723, end: 20090919
  12. PREDONINE [Concomitant]
     Route: 048
     Dates: start: 20090919, end: 20100119
  13. PREDONINE [Concomitant]
     Route: 048
     Dates: start: 20100119, end: 20100403
  14. PREDONINE [Concomitant]
     Route: 048
     Dates: start: 20100403, end: 20100529
  15. PREDONINE [Concomitant]
     Route: 065
     Dates: start: 20130106, end: 20130112
  16. PREDONINE [Concomitant]
     Route: 065
     Dates: start: 20130113, end: 20130114
  17. PREDONINE [Concomitant]
     Route: 065
     Dates: start: 20130115, end: 20130116
  18. PREDONINE [Concomitant]
     Route: 065
     Dates: start: 20130117, end: 20130118
  19. PREDONINE [Concomitant]
     Route: 065
     Dates: start: 20130119
  20. BRUFEN [Concomitant]
     Indication: JUVENILE IDIOPATHIC ARTHRITIS
     Route: 048
     Dates: start: 20050325, end: 20060324
  21. BRUFEN [Concomitant]
     Route: 048
     Dates: start: 20060324, end: 20080112
  22. BRUFEN [Concomitant]
     Route: 048
     Dates: start: 20080112, end: 20090723
  23. BRUFEN [Concomitant]
     Route: 048
     Dates: start: 20080112, end: 20090723
  24. BRUFEN [Concomitant]
     Route: 048
     Dates: start: 20090723, end: 20091027

REACTIONS (3)
  - VIIth nerve paralysis [Recovered/Resolved]
  - Herpes virus infection [Unknown]
  - Lip blister [Recovered/Resolved]
